FAERS Safety Report 7514018-3 (Version None)
Quarter: 2011Q2

REPORT INFORMATION
  Report Type: 
  Country: None (occurrence: None)
  Receive Date: 20110531
  Receipt Date: 20100203
  Transmission Date: 20111010
  Serious: No
  Sender: FDA-Public Use
  Company Number: US-BAYER-201013253NA

PATIENT
  Age: 80 Year
  Sex: Female

DRUGS (3)
  1. BETA BLOCKING AGENTS [Concomitant]
  2. AVELOX [Suspect]
     Indication: LARYNGITIS
  3. CALCIUM CHANNEL BLOCKERS [Concomitant]

REACTIONS (2)
  - NAUSEA [None]
  - DIARRHOEA [None]
